FAERS Safety Report 6969348-0 (Version None)
Quarter: 2010Q3

REPORT INFORMATION
  Report Type: 
  Country: None (occurrence: None)
  Receive Date: 20100907
  Receipt Date: 20100831
  Transmission Date: 20110219
  Serious: Yes (Other)
  Sender: FDA-Public Use
  Company Number: US-AMGEN-KDL434915

PATIENT
  Sex: Male
  Weight: 88.5 kg

DRUGS (6)
  1. ENBREL [Suspect]
     Indication: PSORIASIS
     Route: 058
     Dates: start: 20070817
  2. ZETIA [Concomitant]
  3. LIPITOR [Concomitant]
  4. HYDROCHLOROTHIAZIDE [Concomitant]
  5. ATENOLOL [Concomitant]
  6. LISINOPRIL [Concomitant]

REACTIONS (6)
  - ACTINIC KERATOSIS [None]
  - BASAL CELL CARCINOMA [None]
  - INCORRECT PRODUCT STORAGE [None]
  - INJECTION SITE RASH [None]
  - PAIN IN EXTREMITY [None]
  - PRODUCT CONTAMINATION [None]
